FAERS Safety Report 7580389-5 (Version None)
Quarter: 2011Q2

REPORT INFORMATION
  Report Type: 
  Country: None (occurrence: None)
  Receive Date: 20110629
  Receipt Date: 20110622
  Transmission Date: 20111010
  Serious: Yes (Other)
  Sender: FDA-Public Use
  Company Number: CN-ROCHE-785120

PATIENT
  Age: 65 Year
  Sex: Male
  Weight: 44 kg

DRUGS (11)
  1. OXALIPLATIN [Concomitant]
     Route: 041
     Dates: start: 20100101
  2. OXALIPLATIN [Concomitant]
     Indication: COLON CANCER
     Route: 041
     Dates: start: 20080701
  3. XELODA [Suspect]
     Route: 048
     Dates: start: 20110607
  4. FLUOROURACIL [Concomitant]
     Dates: start: 20110201
  5. IRINOTECAN HYDROCHLORIDE [Concomitant]
     Indication: COLON CANCER
     Dates: start: 20100501
  6. XELODA [Suspect]
     Indication: COLON CANCER
     Dosage: 1000 MG IN THE MORNING, 500 MG IN THE EVENING
     Route: 048
     Dates: start: 20100101, end: 20100101
  7. FLUOROURACIL [Concomitant]
     Indication: COLON CANCER
     Dates: start: 20080701
  8. OXALIPLATIN [Concomitant]
     Route: 041
     Dates: start: 20091201
  9. OXALIPLATIN [Concomitant]
     Route: 041
     Dates: start: 20100501
  10. FLUOROURACIL [Concomitant]
     Dates: start: 20091201
  11. FLUOROURACIL [Concomitant]
     Dates: start: 20100101

REACTIONS (7)
  - COLON CANCER METASTATIC [None]
  - TUMOUR PERFORATION [None]
  - PRURITUS [None]
  - DECREASED APPETITE [None]
  - ASTHENIA [None]
  - BONE PAIN [None]
  - VOMITING [None]
